FAERS Safety Report 13608134 (Version 2)
Quarter: 2017Q2

REPORT INFORMATION
  Report Type: Spontaneous
  Country: IT (occurrence: IT)
  Receive Date: 20170602
  Receipt Date: 20170607
  Transmission Date: 20170830
  Serious: Yes (Other)
  Sender: FDA-Public Use
  Company Number: PHHY2017IT076358

PATIENT
  Age: 72 Year
  Sex: Female
  Weight: 79 kg

DRUGS (6)
  1. HERCEPTIN [Suspect]
     Active Substance: TRASTUZUMAB
     Indication: BREAST CANCER
     Dosage: 474 MG, CYCLIC
     Route: 042
     Dates: start: 20170111, end: 20170217
  2. DEXAMETHASONE. [Concomitant]
     Active Substance: DEXAMETHASONE
     Indication: PRODUCT USED FOR UNKNOWN INDICATION
     Dosage: 16 MG, UNK
     Route: 048
     Dates: start: 20170111, end: 20170217
  3. ONDANSETRON HIKMA [Concomitant]
     Active Substance: ONDANSETRON
     Indication: PRODUCT USED FOR UNKNOWN INDICATION
     Dosage: 8 MG, UNK
     Route: 042
     Dates: start: 20170111, end: 20170211
  4. CARBOPLATINO AHCL [Suspect]
     Active Substance: CARBOPLATIN
     Indication: BREAST CANCER
     Dosage: 629.9 MG, CYCLIC
     Route: 042
     Dates: start: 20170111, end: 20170217
  5. DOCETAXEL SANDOZ [Suspect]
     Active Substance: DOCETAXEL
     Indication: BREAST CANCER
     Dosage: 100 MG, CYCLIC
     Route: 042
     Dates: start: 20170111, end: 20170217
  6. ONDANSETRON HIKMA [Concomitant]
     Active Substance: ONDANSETRON
     Dosage: UNK

REACTIONS (2)
  - Erythema [Recovering/Resolving]
  - Skin burning sensation [Recovering/Resolving]

NARRATIVE: CASE EVENT DATE: 20170217
